FAERS Safety Report 10195200 (Version 2)
Quarter: 2014Q2

REPORT INFORMATION
  Report Type: Spontaneous
  Country: NG (occurrence: NG)
  Receive Date: 20140526
  Receipt Date: 20140526
  Transmission Date: 20141212
  Serious: Yes (Other)
  Sender: FDA-Public Use
  Company Number: NG-ELI_LILLY_AND_COMPANY-NG201405000903

PATIENT
  Age: 28 Year
  Sex: Male
  Weight: 55 kg

DRUGS (7)
  1. CYCLOSERINE [Suspect]
     Indication: TUBERCULOSIS
     Dosage: 750 MG, QD
  2. CYCLOSERINE [Suspect]
     Dosage: 250 MG, BID
     Route: 065
  3. PYRAZINAMIDE [Concomitant]
     Indication: TUBERCULOSIS
     Dosage: 1.5 G, QD
     Route: 065
  4. KANAMYCIN [Concomitant]
     Indication: TUBERCULOSIS
     Dosage: 1 G, QD
     Route: 065
  5. LEVOFLOXACIN [Concomitant]
     Indication: TUBERCULOSIS
     Dosage: 750 MG, QD
     Route: 065
  6. PROTIONAMIDE [Concomitant]
     Indication: TUBERCULOSIS
     Dosage: 750 MG, QD
     Route: 065
  7. PYRIDOXINE [Concomitant]
     Indication: TUBERCULOSIS
     Dosage: 200 MG, QD

REACTIONS (10)
  - Acute psychosis [Recovered/Resolved]
  - Decreased appetite [Unknown]
  - Toxicity to various agents [Recovered/Resolved]
  - Torticollis [Unknown]
  - Disorientation [Recovered/Resolved]
  - Aggression [Recovered/Resolved]
  - Aggression [Recovered/Resolved]
  - Confusional state [Recovered/Resolved]
  - Negativism [Recovered/Resolved]
  - Insomnia [Recovered/Resolved]
